FAERS Safety Report 20231720 (Version 3)
Quarter: 2022Q2

REPORT INFORMATION
  Report Type: Spontaneous
  Country: US (occurrence: US)
  Receive Date: 20211227
  Receipt Date: 20220609
  Transmission Date: 20220720
  Serious: No
  Sender: FDA-Public Use
  Company Number: US-AVEO ONCOLOGY-2021-AVEO-US003714

PATIENT

DRUGS (17)
  1. FOTIVDA [Suspect]
     Active Substance: TIVOZANIB HYDROCHLORIDE
     Indication: Renal cell carcinoma
     Dosage: 1.34 MG, DAILY 21 DAYS ON, 7 DAYS OFF
     Route: 048
     Dates: start: 20210529, end: 20220222
  2. ASPIRIN [Concomitant]
     Active Substance: ASPIRIN
  3. BENAZEPRIL [Concomitant]
     Active Substance: BENAZEPRIL HYDROCHLORIDE
  4. DIPHENHYDRAMINE [Concomitant]
     Active Substance: DIPHENHYDRAMINE
  5. FINASTERIDE [Concomitant]
     Active Substance: FINASTERIDE
  6. LOSARTAN [Concomitant]
     Active Substance: LOSARTAN
  7. METOPROLOL SUCCINATE [Concomitant]
     Active Substance: METOPROLOL SUCCINATE
  8. NIFEDIPINE [Concomitant]
     Active Substance: NIFEDIPINE
  9. PRAVASTATIN [Concomitant]
     Active Substance: PRAVASTATIN
  10. PREDNISONE [Concomitant]
     Active Substance: PREDNISONE
  11. PROAIR HFA [Concomitant]
     Active Substance: ALBUTEROL SULFATE
  12. PROPAFENONE [Concomitant]
     Active Substance: PROPAFENONE
  13. SINGULAIR [Concomitant]
     Active Substance: MONTELUKAST SODIUM
  14. SYMBICORT [Concomitant]
     Active Substance: BUDESONIDE\FORMOTEROL FUMARATE DIHYDRATE
  15. VITAMIN D3 [Concomitant]
     Active Substance: CHOLECALCIFEROL
  16. WARFARIN [Concomitant]
     Active Substance: WARFARIN
  17. ZOFRAN [Concomitant]
     Active Substance: ONDANSETRON HYDROCHLORIDE

REACTIONS (6)
  - Skin exfoliation [Unknown]
  - Product dose omission issue [Not Recovered/Not Resolved]
  - Therapy interrupted [None]
  - Muscle strain [Unknown]
  - Pleural effusion [None]
  - Aspiration pleural cavity [None]
